FAERS Safety Report 15555503 (Version 1)
Quarter: 2018Q4

REPORT INFORMATION
  Report Type: Report from Study
  Country: KR (occurrence: KR)
  Receive Date: 20181026
  Receipt Date: 20181026
  Transmission Date: 20190205
  Serious: Yes (Death, Other)
  Sender: FDA-Public Use
  Company Number: KR-MYLANLABS-2018M1077872

PATIENT
  Sex: Female

DRUGS (3)
  1. IFOSFAMIDE. [Suspect]
     Active Substance: IFOSFAMIDE
     Indication: CERVIX CARCINOMA
     Dosage: ADMINISTERED OVER THREE HOURS.
     Route: 065
  2. PACLITAXEL. [Suspect]
     Active Substance: PACLITAXEL
     Indication: CERVIX CARCINOMA
     Dosage: ADMINISTERED OVER THREE HOURS.
     Route: 065
  3. MESNA. [Concomitant]
     Active Substance: MESNA
     Indication: CERVIX CARCINOMA
     Dosage: ADMINISTERED FROM DAYS 2-4.
     Route: 065

REACTIONS (3)
  - Febrile neutropenia [Fatal]
  - Intestinal perforation [Not Recovered/Not Resolved]
  - Septic shock [Fatal]
